FAERS Safety Report 5774382-2 (Version None)
Quarter: 2008Q2

REPORT INFORMATION
  Report Type: 
  Country: None (occurrence: None)
  Receive Date: 20080616
  Receipt Date: 20080604
  Transmission Date: 20081010
  Serious: Yes (Other)
  Sender: FDA-Public Use
  Company Number: US-PFIZER INC-2008004635

PATIENT
  Sex: Female
  Weight: 77.27 kg

DRUGS (11)
  1. CHANTIX [Suspect]
     Indication: SMOKING CESSATION THERAPY
     Dosage: TEXT:EVERYDAY-FREQ:INTERVAL: EVERY DAY
     Route: 048
  2. ALPRAZOLAM [Suspect]
     Indication: ANXIOLYTIC THERAPY
  3. XANAX [Suspect]
  4. PRILOSEC [Concomitant]
  5. LANOXIN [Concomitant]
  6. ZETIA [Concomitant]
  7. COMBIVENT [Concomitant]
     Route: 055
  8. COUMADIN [Concomitant]
  9. COUMADIN [Concomitant]
  10. LEVOTHYROXINE SODIUM [Concomitant]
  11. OXYGEN [Concomitant]

REACTIONS (7)
  - AGITATION [None]
  - ANGER [None]
  - ANXIETY [None]
  - BLOOD PRESSURE INCREASED [None]
  - DEPRESSION [None]
  - HALLUCINATION [None]
  - HOMICIDAL IDEATION [None]
